FAERS Safety Report 7388739 (Version 3)
Quarter: 2013Q1

REPORT INFORMATION
  Report Type: Report from Study
  Country: JP (occurrence: JP)
  Receive Date: 20100514
  Receipt Date: 20130306
  Transmission Date: 20140127
  Serious: Yes (Hospitalization)
  Sender: FDA-Public Use
  Company Number: JP-ROCHE-659927

PATIENT
  Age: 68 Year
  Sex: Female

DRUGS (27)
  1. TOCILIZUMAB [Suspect]
     Indication: RHEUMATOID ARTHRITIS
     Route: 041
     Dates: start: 20090824, end: 20090824
  2. TOCILIZUMAB [Suspect]
     Route: 041
     Dates: start: 20090930, end: 20090930
  3. TOCILIZUMAB [Suspect]
     Route: 041
     Dates: start: 20091026, end: 20091026
  4. TOCILIZUMAB [Suspect]
     Route: 041
     Dates: start: 20091130, end: 20091130
  5. TOCILIZUMAB [Suspect]
     Route: 041
     Dates: start: 20091228, end: 20091228
  6. AZULFIDINE-EN [Concomitant]
     Indication: RHEUMATOID ARTHRITIS
     Dosage: DOSE FORM: ENTERIC COATING DRUG
     Route: 048
  7. TAKEPRON [Concomitant]
     Indication: PROPHYLAXIS
     Route: 048
  8. INNOLET 30R [Concomitant]
     Indication: DIABETES MELLITUS
     Route: 058
  9. KINEDAK [Concomitant]
     Indication: DIABETES MELLITUS
     Route: 048
  10. CINAL [Concomitant]
     Indication: RENAL IMPAIRMENT
     Route: 048
  11. MEXITIL [Concomitant]
     Indication: DIABETES MELLITUS
     Route: 048
  12. BAYASPIRIN [Concomitant]
     Indication: PROPHYLAXIS
     Dosage: DOSE FORM: ENTERIC
     Route: 048
  13. LAXOBERON [Concomitant]
     Indication: CONSTIPATION
     Dosage: DOSE FORM: ORAL FORMULATION (NOT OTHERWISE SPECIFIED). TAKEN AS NEEDED
     Route: 048
  14. PURSENNID [Concomitant]
     Indication: CONSTIPATION
     Route: 048
  15. CATLEP [Concomitant]
     Indication: RHEUMATOID ARTHRITIS
     Dosage: DOSE FORM: TAPE. TAKEN AS NEEDED
     Route: 061
  16. MICARDIS [Concomitant]
     Indication: HYPERTENSION
     Route: 048
  17. LIPITOR [Concomitant]
     Indication: HYPERLIPIDAEMIA
     Route: 048
  18. AMLODIN [Concomitant]
     Indication: HYPERTENSION
     Route: 048
  19. EPOGIN S [Concomitant]
     Dosage: DOSE: 12000 UT.
     Route: 058
  20. LASIX [Concomitant]
     Indication: HYPERTENSION
     Route: 048
  21. LASIX [Concomitant]
     Route: 048
  22. CARDENALIN [Concomitant]
     Indication: HYPERTENSION
     Route: 048
     Dates: start: 20090824, end: 20090925
  23. MUCODYNE [Concomitant]
     Indication: SINUSITIS
     Route: 048
  24. CLARITH [Concomitant]
     Indication: SINUSITIS
     Route: 048
  25. KENACORT [Concomitant]
     Indication: RHEUMATOID ARTHRITIS
     Route: 014
     Dates: start: 20090903, end: 20090903
  26. ACECOL [Concomitant]
     Indication: HYPERTENSION
     Route: 048
  27. PREDNISOLONE [Concomitant]
     Indication: RHEUMATOID ARTHRITIS
     Route: 048

REACTIONS (4)
  - Pleurisy [Recovered/Resolved]
  - Cardiac failure [Recovered/Resolved]
  - Rash [Recovered/Resolved]
  - Sinusitis [Recovered/Resolved]
